FAERS Safety Report 8946849 (Version 2)
Quarter: 2012Q4

REPORT INFORMATION
  Report Type: 
  Country: US (occurrence: US)
  Receive Date: 20121205
  Receipt Date: 20121219
  Transmission Date: 20130627
  Serious: Yes (Hospitalization)
  Sender: FDA-Public Use
  Company Number: US-GLAXOSMITHKLINE-A1003375A

PATIENT
  Age: 69 Year
  Sex: Female

DRUGS (17)
  1. ADVAIR [Suspect]
     Indication: ASTHMA
     Dosage: 1PUFF Twice per day
     Route: 055
     Dates: start: 2009
  2. VENTOLIN [Suspect]
     Route: 065
  3. ALBUTEROL NEBULIZER [Concomitant]
  4. CPAP [Concomitant]
  5. VERAPAMIL [Concomitant]
  6. PRAVASTATIN [Concomitant]
  7. EVISTA [Concomitant]
  8. RECLAST [Concomitant]
  9. TRILIPIX [Concomitant]
  10. PROTONIX [Concomitant]
  11. VITAMIN C [Concomitant]
  12. VITAMIN D3 [Concomitant]
  13. VITAMIN B12 [Concomitant]
  14. ASPIRIN [Concomitant]
  15. PROBIOTICS [Concomitant]
  16. KONSYL [Concomitant]
  17. NIFEDIPINE [Concomitant]

REACTIONS (4)
  - Hospitalisation [Unknown]
  - Asthma [Recovered/Resolved]
  - Dyspnoea [Recovered/Resolved]
  - Cough [Recovered/Resolved]
